FAERS Safety Report 6448440-3 (Version None)
Quarter: 2009Q4

REPORT INFORMATION
  Report Type: 
  Country: None (occurrence: None)
  Receive Date: 20091120
  Receipt Date: 20091118
  Transmission Date: 20100525
  Serious: Yes (Hospitalization)
  Sender: FDA-Public Use
  Company Number: US-ROXANE LABORATORIES, INC.-2009-RO-01180RO

PATIENT
  Sex: Female
  Weight: 83 kg

DRUGS (19)
  1. METHADONE HCL [Suspect]
     Indication: PAIN
     Route: 048
     Dates: end: 20081015
  2. METHADONE HCL [Suspect]
     Dosage: 80 MG
     Dates: end: 20081015
  3. IMC-1121B [Suspect]
     Indication: METASTATIC MALIGNANT MELANOMA
     Route: 042
     Dates: start: 20080801, end: 20080924
  4. CLONAZEPAM [Suspect]
     Indication: ANXIETY
     Dosage: 1 MG
     Route: 048
     Dates: start: 20081022
  5. PROVIGIL [Suspect]
     Indication: FATIGUE
     Dosage: 100 MG
     Route: 048
     Dates: start: 20030101
  6. FLUOXETINE [Concomitant]
     Indication: MOOD ALTERED
     Route: 048
     Dates: start: 19990101
  7. GLUCOVANCE [Concomitant]
     Indication: DIABETES MELLITUS
     Route: 048
     Dates: start: 19990101
  8. PREVACID [Concomitant]
     Indication: GASTRIC ULCER
     Dosage: 60 MG
     Route: 048
  9. SENAKOT S [Concomitant]
     Indication: DRUG USE FOR UNKNOWN INDICATION
     Route: 048
  10. SEROQUEL [Concomitant]
     Indication: DRUG USE FOR UNKNOWN INDICATION
     Dosage: 200 MG
     Route: 048
  11. TOPROL-XL [Concomitant]
     Indication: HYPERTENSION
     Dosage: 100 MG
     Route: 048
     Dates: start: 20010101
  12. HYDROCODONE [Concomitant]
     Indication: PAIN
     Route: 048
  13. HYDROMORPHONE HCL [Concomitant]
     Indication: PAIN
     Route: 048
  14. LISINOPRIL [Concomitant]
     Indication: HYPERTENSION
     Dosage: 40 MG
     Route: 048
  15. NEXIUM [Concomitant]
     Indication: GASTROOESOPHAGEAL REFLUX DISEASE
     Dosage: 40 MG
     Route: 048
  16. METOCLOPRAMIDE HCL [Concomitant]
     Indication: NAUSEA
     Route: 048
  17. DOCUSATE SODIUM [Concomitant]
     Indication: CONSTIPATION
     Route: 048
     Dates: start: 20030101
  18. ANTIEMETIC [Concomitant]
     Indication: NAUSEA
  19. ANTIEMETIC [Concomitant]
     Indication: VOMITING

REACTIONS (11)
  - BLOOD ALKALINE PHOSPHATASE INCREASED [None]
  - BLOOD PRESSURE INCREASED [None]
  - DECREASED APPETITE [None]
  - DYSGEUSIA [None]
  - FATIGUE [None]
  - INSOMNIA [None]
  - NAUSEA [None]
  - NEUTROPHIL COUNT INCREASED [None]
  - PSYCHOTIC DISORDER [None]
  - SUBSTANCE ABUSE [None]
  - WEIGHT DECREASED [None]
